FAERS Safety Report 12133515 (Version 2)
Quarter: 2016Q1

REPORT INFORMATION
  Report Type: Spontaneous
  Country: IL (occurrence: IL)
  Receive Date: 20160301
  Receipt Date: 20160310
  Transmission Date: 20160526
  Serious: Yes (Hospitalization, Other)
  Sender: FDA-Public Use
  Company Number: IL-PFIZER INC-2016127277

PATIENT
  Age: 10 Year
  Sex: Female

DRUGS (1)
  1. GENOTROPIN [Suspect]
     Active Substance: SOMATROPIN
     Dosage: 1 MG, UNK
     Dates: start: 20160215

REACTIONS (3)
  - Syncope [Unknown]
  - Seizure like phenomena [Unknown]
  - Loss of consciousness [Unknown]
